FAERS Safety Report 8890207 (Version 1)
Quarter: 2012Q4

REPORT INFORMATION
  Report Type: 
  Country: CO (occurrence: CO)
  Receive Date: 20121107
  Receipt Date: 20121107
  Transmission Date: 20130627
  Serious: Yes (Other)
  Sender: FDA-Public Use
  Company Number: CO-PFIZER INC-2012271649

PATIENT
  Age: 46 Year
  Sex: Male

DRUGS (2)
  1. LIPITOR [Suspect]
     Indication: HIGH CHOLESTEROL
     Dosage: 20 mg, once daily
     Route: 048
     Dates: start: 2000
  2. ASPIRINETTA [Concomitant]
     Indication: ANTICOAGULANT THERAPY
     Dosage: one tablet daily
     Route: 048
     Dates: start: 2000

REACTIONS (1)
  - Mitral valve disease [Unknown]
